FAERS Safety Report 4892322-5 (Version None)
Quarter: 2006Q1

REPORT INFORMATION
  Report Type: 
  Country: None (occurrence: None)
  Receive Date: 20060126
  Receipt Date: 20051019
  Transmission Date: 20060701
  Serious: Yes (Hospitalization)
  Sender: FDA-Public Use
  Company Number: US-GLAXOSMITHKLINE-A0578776A

PATIENT
  Age: 85 Year
  Sex: Female

DRUGS (26)
  1. AVANDAMET [Suspect]
     Route: 048
     Dates: start: 20050315, end: 20050101
  2. AVANDIA [Suspect]
     Route: 048
     Dates: end: 20051014
  3. WARFARIN [Concomitant]
  4. ATENOLOL [Concomitant]
  5. UNSPECIFIED MEDICATION [Concomitant]
  6. KLOR-CON [Concomitant]
  7. FUROSEMIDE [Concomitant]
  8. METOLAZONE [Concomitant]
  9. METFORMIN HCL [Concomitant]
  10. ZOCOR [Concomitant]
  11. LISINOPRIL [Concomitant]
  12. AMARYL [Concomitant]
  13. LEVOTHYROXINE SODIUM [Concomitant]
  14. NORVASC [Concomitant]
  15. BETAMETHASONE DIPROPIONATE (TOPICAL) [Concomitant]
  16. CEPHALEXIN [Concomitant]
  17. LEVOXYL [Concomitant]
  18. MECLIZINE [Concomitant]
  19. IBUPROFEN [Concomitant]
  20. NYSTATIN [Concomitant]
  21. METRONIDAZOLE [Concomitant]
  22. FLUCONAZOLE [Concomitant]
  23. DIGITEK [Concomitant]
  24. CLOTRIMAZOLE [Concomitant]
  25. PHENAZOPYRIDIN [Concomitant]
  26. NYSTATIN [Concomitant]
     Route: 048

REACTIONS (5)
  - ASTHENIA [None]
  - BLOOD GLUCOSE INCREASED [None]
  - DYSPEPSIA [None]
  - NAUSEA [None]
  - WEIGHT DECREASED [None]
